FAERS Safety Report 19526716 (Version 2)
Quarter: 2021Q3

REPORT INFORMATION
  Report Type: Spontaneous
  Country: EG (occurrence: EG)
  Receive Date: 20210713
  Receipt Date: 20210721
  Transmission Date: 20211014
  Serious: Yes (Life-Threatening, Other)
  Sender: FDA-Public Use
  Company Number: EG-NOVOPROD-827479

PATIENT
  Age: 468 Month
  Sex: Male
  Weight: 55 kg

DRUGS (4)
  1. GLUCOPHAGE [Concomitant]
     Active Substance: METFORMIN HYDROCHLORIDE
     Indication: DIABETES MELLITUS
     Dosage: 1000 IU, QD(1 TAB.\DAY ? SINCE 6 OR 7 YEARS AGO)
     Route: 048
  2. LANTUS [Concomitant]
     Active Substance: INSULIN GLARGINE
     Dosage: 20 IU, QD(20 IUIGHT ? SINCE 2 MONTHS AGO)
     Route: 058
  3. NOVORAPID [Suspect]
     Active Substance: INSULIN ASPART
     Indication: DIABETES MELLITUS
     Dosage: 40 IU, QD(20 IU\BREAKFAST, 5 IU\LUNCH AND 15 IU\DINNER)
     Route: 058
  4. CRESTOR [Concomitant]
     Active Substance: ROSUVASTATIN CALCIUM
     Indication: HYPERLIPIDAEMIA
     Dosage: 1 TAB.\DINNER ? SINCE 15 DAYS AGO
     Route: 048

REACTIONS (2)
  - Chills [Not Recovered/Not Resolved]
  - Cerebral thrombosis [Recovered/Resolved]
